FAERS Safety Report 18605699 (Version 1)
Quarter: 2020Q4

REPORT INFORMATION
  Report Type: Spontaneous
  Country: FR (occurrence: FR)
  Receive Date: 20201211
  Receipt Date: 20201211
  Transmission Date: 20210114
  Serious: Yes (Hospitalization)
  Sender: FDA-Public Use
  Company Number: FR-TEVA-2020-FR-1856783

PATIENT
  Age: 52 Year
  Sex: Female

DRUGS (9)
  1. ACUPAN [Suspect]
     Active Substance: NEFOPAM HYDROCHLORIDE
     Indication: BACK PAIN
     Dosage: UNIT DOSE : 3 DOSAGE FORMS
     Route: 042
     Dates: start: 20201110, end: 20201116
  2. TRAMADOL BASE [Suspect]
     Active Substance: TRAMADOL
     Indication: BACK PAIN
     Dosage: UNIT DOSE : 200 MG
     Route: 042
     Dates: start: 20201110, end: 20201115
  3. PANTOPRAZOLE [Concomitant]
     Active Substance: PANTOPRAZOLE
     Route: 048
     Dates: start: 20201110, end: 20201120
  4. KETOPROFENE [Suspect]
     Active Substance: KETOPROFEN
     Indication: BACK PAIN
     Dosage: UNIT DOSE : 200 MG
     Route: 048
     Dates: start: 20201115, end: 20201116
  5. DIAZEPAM. [Suspect]
     Active Substance: DIAZEPAM
     Indication: ANXIETY
     Dosage: UNIT DOSE : 15 MG
     Route: 048
     Dates: start: 20201110, end: 20201116
  6. CONTRAMAL L.P. 150 MG, COMPRIME A LIBERATION PROLONGEE [Suspect]
     Active Substance: TRAMADOL HYDROCHLORIDE
     Indication: BACK PAIN
     Dosage: UNIT DOSE : 2 DOSAGE FORMS
     Route: 048
     Dates: start: 20201115, end: 20201116
  7. PARACETAMOL [Concomitant]
     Active Substance: ACETAMINOPHEN
     Route: 048
     Dates: start: 20201110
  8. KETOPROFENE [Suspect]
     Active Substance: KETOPROFEN
     Dosage: UNIT DOSE : 200 MG
     Route: 042
     Dates: start: 20201110, end: 20201114
  9. LOVENOX [Concomitant]
     Active Substance: ENOXAPARIN SODIUM
     Dosage: UNIT DOSE : 4000 IU
     Route: 058
     Dates: start: 20201110, end: 20201120

REACTIONS (1)
  - Urticaria [Recovering/Resolving]

NARRATIVE: CASE EVENT DATE: 20201116
